FAERS Safety Report 5536651-0 (Version None)
Quarter: 2007Q4

REPORT INFORMATION
  Report Type: 
  Country: None (occurrence: None)
  Receive Date: 20071204
  Receipt Date: 20071119
  Transmission Date: 20080405
  Serious: Yes (Life-Threatening)
  Sender: FDA-Public Use
  Company Number: 2007S1012136

PATIENT
  Age: 19 Year
  Sex: Female

DRUGS (14)
  1. ACYCLOVIR [Suspect]
     Indication: DRUG USE FOR UNKNOWN INDICATION
  2. ALLOPURINOL [Suspect]
     Indication: DRUG USE FOR UNKNOWN INDICATION
     Dosage: 300 MG;1DAYS;ORAL
     Route: 048
  3. CASPOFUNGIN (CASPOFUNGIN) [Suspect]
     Indication: DRUG USE FOR UNKNOWN INDICATION
     Dosage: 70 MG;DAILY;INTRAVENOUS
     Route: 042
  4. CHLORPHENAMINE (CHLORPHENAMINE) [Suspect]
     Indication: DRUG USE FOR UNKNOWN INDICATION
     Dosage: 10 MG;4 TIMES A DAY; INTRAVENOUS
     Route: 042
  5. CYCLOSPORINE [Suspect]
     Indication: DRUG USE FOR UNKNOWN INDICATION
  6. ETOPOSIDE [Suspect]
     Indication: DRUG USE FOR UNKNOWN INDICATION
     Dosage: INTRAVENOUS
     Route: 042
     Dates: start: 20070915, end: 20070915
  7. KETALAR [Suspect]
     Indication: PAIN
     Dosage: 6 ML;EVERY HOUR; INTRAVENOUS
     Route: 042
  8. MORPHINE [Suspect]
     Indication: DRUG USE FOR UNKNOWN INDICATION
     Dosage: INTRAVENOUS
     Route: 042
  9. NORETHISTERONE (NORETHISTERONE) [Suspect]
     Indication: DRUG USE FOR UNKNOWN INDICATION
     Dosage: 5 MG;3 TIMES A DAY;ORAL
     Route: 048
  10. OMEPRAZOLE [Suspect]
     Indication: DRUG USE FOR UNKNOWN INDICATION
     Dosage: 8 MG;3 TIMES A DAY;INTRAVENOUS
     Route: 042
  11. ONDANSETRON HCL [Suspect]
     Indication: DRUG USE FOR UNKNOWN INDICATION
     Dosage: 8 MG;3 TIMES A DAY;INTRAVENOUS
     Route: 042
  12. ACETAMINOPHEN [Suspect]
     Indication: DRUG USE FOR UNKNOWN INDICATION
     Dosage: INTRAVENOUS
     Route: 042
  13. TAZOCIN (PIP/TAZO) [Suspect]
     Indication: DRUG USE FOR UNKNOWN INDICATION
     Dosage: INTRAVENOUS
     Route: 042
  14. VORICONAZOLE (VORICONAZOLE) [Suspect]
     Indication: DRUG USE FOR UNKNOWN INDICATION
     Dosage: 200 MG;TWICE A DAY, ORAL
     Route: 048

REACTIONS (4)
  - DILATATION INTRAHEPATIC DUCT ACQUIRED [None]
  - HEPATOTOXICITY [None]
  - LIVER FUNCTION TEST ABNORMAL [None]
  - VENOOCCLUSIVE DISEASE [None]
